FAERS Safety Report 8032388-7 (Version None)
Quarter: 2012Q1

REPORT INFORMATION
  Report Type: 
  Country: None (occurrence: None)
  Receive Date: 20120109
  Receipt Date: 20120109
  Transmission Date: 20120608
  Serious: Yes (Hospitalization)
  Sender: FDA-Public Use
  Company Number: None

PATIENT
  Age: 65 Year
  Sex: Male
  Weight: 92.3 kg

DRUGS (1)
  1. NICOTINE [Suspect]
     Indication: TOBACCO ABUSE
     Dosage: 1 EVERY DAY TOP
     Route: 061
     Dates: start: 20110711, end: 20110925

REACTIONS (1)
  - ANAPHYLACTIC REACTION [None]
